FAERS Safety Report 8760864 (Version 1)
Quarter: 2012Q4

REPORT INFORMATION
  Report Type: 
  Country: US (occurrence: US)
  Receive Date: 20120830
  Receipt Date: 20120830
  Transmission Date: 20130627
  Serious: No
  Sender: FDA-Public Use
  Company Number: US-JNJFOC-20120805987

PATIENT
  Sex: Male
  Weight: 99.79 kg

DRUGS (9)
  1. DURAGESIC [Suspect]
     Indication: PAIN IN EXTREMITY
     Route: 062
     Dates: start: 201205
  2. DURAGESIC [Suspect]
     Indication: COMPLEX REGIONAL PAIN SYNDROME
     Route: 062
     Dates: start: 201205
  3. LYRICA [Concomitant]
     Indication: NEURALGIA
     Route: 048
     Dates: start: 2010
  4. LYRICA [Concomitant]
     Indication: COMPLEX REGIONAL PAIN SYNDROME
     Route: 048
     Dates: start: 2010
  5. TOPAMAX [Concomitant]
     Route: 048
     Dates: start: 2010
  6. CELEBREX [Concomitant]
     Indication: ARTHRITIS
     Route: 048
     Dates: start: 2009
  7. PERCOCET [Concomitant]
     Indication: ARTHRITIS
     Route: 048
     Dates: start: 2009
  8. LIDODERM [Concomitant]
     Indication: PAIN
     Route: 062
     Dates: start: 2009
  9. UNKNOWN MEDICATION [Concomitant]
     Indication: LOCAL ANAESTHESIA
     Dosage: 3 to 5 times
     Route: 061
     Dates: start: 2009

REACTIONS (8)
  - Wrong technique in drug usage process [Not Recovered/Not Resolved]
  - Product quality issue [Not Recovered/Not Resolved]
  - Wrong technique in drug usage process [Not Recovered/Not Resolved]
  - Drug ineffective [Not Recovered/Not Resolved]
  - Drug administered at inappropriate site [Not Recovered/Not Resolved]
  - Pruritus [Not Recovered/Not Resolved]
  - Erythema [Not Recovered/Not Resolved]
  - Wrong technique in drug usage process [Not Recovered/Not Resolved]
